FAERS Safety Report 18560986 (Version 1)
Quarter: 2020Q4

REPORT INFORMATION
  Report Type: Report from Study
  Country: AU (occurrence: AU)
  Receive Date: 20201130
  Receipt Date: 20201130
  Transmission Date: 20210114
  Serious: Yes (Other)
  Sender: FDA-Public Use
  Company Number: AU-BAYER-2020-257767

PATIENT

DRUGS (1)
  1. MOXIFLOXACIN. [Suspect]
     Active Substance: MOXIFLOXACIN
     Indication: MYCOPLASMA GENITALIUM INFECTION
     Dosage: UNK

REACTIONS (3)
  - Off label use [None]
  - Nervous system disorder [None]
  - Product use in unapproved indication [None]
